FAERS Safety Report 6295291-9 (Version None)
Quarter: 2009Q3

REPORT INFORMATION
  Report Type: 
  Country: None (occurrence: None)
  Receive Date: 20090803
  Receipt Date: 20090720
  Transmission Date: 20100115
  Serious: Yes (Death)
  Sender: FDA-Public Use
  Company Number: ZA-MEDIMMUNE-MEDI-0008395

PATIENT
  Sex: Female
  Weight: 2.73 kg

DRUGS (2)
  1. SYNAGIS [Suspect]
     Indication: INFECTION PROPHYLAXIS
     Dosage: UNKNOWN
     Dates: start: 20090327, end: 20090424
  2. SYNAGIS [Suspect]
     Dosage: UNKNOWN
     Dates: start: 20090327

REACTIONS (5)
  - APNOEA [None]
  - GROWTH RETARDATION [None]
  - INCREASED UPPER AIRWAY SECRETION [None]
  - MALAISE [None]
  - ORAL CANDIDIASIS [None]
